FAERS Safety Report 11078367 (Version 1)
Quarter: 2015Q2

REPORT INFORMATION
  Report Type: Spontaneous
  Country: US (occurrence: None)
  Receive Date: 20150429
  Receipt Date: 20150429
  Transmission Date: 20150821
  Serious: Yes (Other)
  Sender: FDA-Public Use
  Company Number: None

PATIENT
  Age: 57 Year
  Sex: Female
  Weight: 106.6 kg

DRUGS (19)
  1. PROAIR HFA [Suspect]
     Active Substance: ALBUTEROL SULFATE
     Indication: WHEEZING
     Dosage: 2 PUFFS  FOUR TIMES DAILY
     Route: 055
     Dates: start: 20150420, end: 20150422
  2. LOSARTAN [Concomitant]
     Active Substance: LOSARTAN
  3. LEVOFLOAXIN [Concomitant]
  4. PREDNISONE. [Concomitant]
     Active Substance: PREDNISONE
  5. PROAIR HFA [Suspect]
     Active Substance: ALBUTEROL SULFATE
     Indication: DYSPNOEA
     Dosage: 2 PUFFS  FOUR TIMES DAILY
     Route: 055
     Dates: start: 20150420, end: 20150422
  6. CALCIUM CITRATE WITH VITAMIN D3 [Concomitant]
  7. MULTI-VITAMIN [Concomitant]
     Active Substance: .ALPHA.-TOCOPHEROL ACETATE, DL-\ASCORBIC ACID\CYANOCOBALAMIN\FLUORIDE ION\FOLIC ACID\NIACIN\PYRIDOXINE\RIBOFLAVIN\THIAMINE\VITAMIN A\VITAMIN D
  8. ACAI BERRY [Concomitant]
  9. PRO-BIOTICS ACIDOLPHILUS [Concomitant]
  10. CLARITHROMYCIN (BIAXIN) [Concomitant]
  11. MUCINEX [Concomitant]
     Active Substance: GUAIFENESIN
  12. RANITIDINE [Concomitant]
     Active Substance: RANITIDINE\RANITIDINE HYDROCHLORIDE
  13. NASONEX [Concomitant]
     Active Substance: MOMETASONE FUROATE
  14. VIRTUSSIN AC SYRUP [Concomitant]
  15. VITAMIN E [Concomitant]
     Active Substance: .ALPHA.-TOCOPHEROL
  16. VITAMIN B12 [Concomitant]
     Active Substance: CYANOCOBALAMIN
  17. MELOXICAM. [Concomitant]
     Active Substance: MELOXICAM
  18. ALLEGRA [Concomitant]
     Active Substance: FEXOFENADINE HYDROCHLORIDE
  19. VITAMIN C [Concomitant]
     Active Substance: ASCORBIC ACID

REACTIONS (4)
  - Hypersensitivity [None]
  - Sinus disorder [None]
  - Speech disorder [None]
  - Product quality issue [None]

NARRATIVE: CASE EVENT DATE: 20150420
